FAERS Safety Report 11737206 (Version 1)
Quarter: 2015Q4

REPORT INFORMATION
  Report Type: Spontaneous
  Country: US (occurrence: None)
  Receive Date: 20151112
  Receipt Date: 20151112
  Transmission Date: 20160304
  Serious: Yes (Hospitalization)
  Sender: FDA-Public Use
  Company Number: None

PATIENT
  Age: 45 Year
  Sex: Female
  Weight: 104.33 kg

DRUGS (3)
  1. PAXIL [Suspect]
     Active Substance: PAROXETINE HYDROCHLORIDE
     Indication: ANXIETY
     Route: 048
     Dates: start: 20150708, end: 20150912
  2. PAXIL [Suspect]
     Active Substance: PAROXETINE HYDROCHLORIDE
     Indication: PANIC ATTACK
     Route: 048
     Dates: start: 20150708, end: 20150912
  3. PAXIL [Suspect]
     Active Substance: PAROXETINE HYDROCHLORIDE
     Indication: DEPRESSION
     Route: 048
     Dates: start: 20150708, end: 20150912

REACTIONS (25)
  - Diarrhoea [None]
  - Secretion discharge [None]
  - Vomiting [None]
  - Weight decreased [None]
  - Social problem [None]
  - Gastrooesophageal reflux disease [None]
  - Unevaluable event [None]
  - Loss of consciousness [None]
  - Mood swings [None]
  - Throat tightness [None]
  - Menorrhagia [None]
  - Headache [None]
  - Feeding disorder [None]
  - Amnesia [None]
  - Panic attack [None]
  - Thinking abnormal [None]
  - Ulcer [None]
  - Sexual dysfunction [None]
  - Bone loss [None]
  - Dizziness [None]
  - Abnormal dreams [None]
  - Insomnia [None]
  - Chest pain [None]
  - Abdominal discomfort [None]
  - Muscle atrophy [None]

NARRATIVE: CASE EVENT DATE: 20150912
